FAERS Safety Report 24735023 (Version 1)
Quarter: 2024Q4

REPORT INFORMATION
  Report Type: Spontaneous
  Country: US (occurrence: US)
  Receive Date: 20241215
  Receipt Date: 20241215
  Transmission Date: 20250115
  Serious: No
  Sender: CHURCH & DWIGHT
  Company Number: CA-ChurchDwight-2024-CDW-02197

PATIENT

DRUGS (1)
  1. ZICAM COLD REMEDY NASAL SWABS (HOMEOPATHICS) [Suspect]
     Active Substance: HOMEOPATHICS\ZINC ACETATE\ZINC GLUCONATE
     Indication: Product used for unknown indication
     Route: 045

REACTIONS (2)
  - Anosmia [Unknown]
  - Ageusia [Unknown]
